FAERS Safety Report 4280145-X (Version None)
Quarter: 2004Q1

REPORT INFORMATION
  Report Type: 
  Country: None (occurrence: None)
  Receive Date: 20040126
  Receipt Date: 20040119
  Transmission Date: 20041129
  Serious: Yes (Hospitalization)
  Sender: FDA-Public Use
  Company Number: 2003039737

PATIENT
  Age: 68 Year
  Sex: Male

DRUGS (8)
  1. TAHOR (ATORVASTATIN) [Suspect]
     Indication: ILL-DEFINED DISORDER
     Dosage: UNKNOWN (DAILY), ORAL
     Route: 048
     Dates: end: 20030826
  2. METFORMIN HCL [Suspect]
     Indication: ILL-DEFINED DISORDER
     Dosage: UNKNOWN (DAILY), ORAL
     Route: 048
     Dates: end: 20030829
  3. GLYBURIDE [Concomitant]
  4. ATENOLOL [Concomitant]
  5. ALLOPURINOL [Concomitant]
  6. ACETYLSALICYLIC ACID SRT [Concomitant]
  7. PARACETAMOL (PARACETAMOL) [Concomitant]
  8. PANCREATIN (PANCRETIN) [Concomitant]

REACTIONS (7)
  - BLOOD CREATINE PHOSPHOKINASE INCREASED [None]
  - CHILLS [None]
  - MALAISE [None]
  - NECK PAIN [None]
  - NEURALGIA [None]
  - OSTEOARTHRITIS [None]
  - RESPIRATORY DISORDER [None]
